FAERS Safety Report 5471718-7 (Version None)
Quarter: 2007Q3

REPORT INFORMATION
  Report Type: 
  Country: None (occurrence: None)
  Receive Date: 20070928
  Receipt Date: 20070418
  Transmission Date: 20080115
  Serious: No
  Sender: FDA-Public Use
  Company Number: US-BRISTOL-MYERS SQUIBB COMPANY-13751193

PATIENT
  Sex: Female
  Weight: 91 kg

DRUGS (3)
  1. DEFINITY [Suspect]
     Indication: CHEST PAIN
     Route: 042
     Dates: start: 20070417, end: 20070417
  2. ATENOLOL [Concomitant]
  3. COZAAR [Concomitant]

REACTIONS (1)
  - BACK PAIN [None]
